FAERS Safety Report 5952539-5 (Version None)
Quarter: 2008Q4

REPORT INFORMATION
  Report Type: 
  Country: None (occurrence: None)
  Receive Date: 20081023
  Receipt Date: 20080303
  Transmission Date: 20090506
  Serious: Yes (Other)
  Sender: FDA-Public Use
  Company Number: 45919

PATIENT
  Age: 55 Year
  Sex: Male
  Weight: 69 kg

DRUGS (1)
  1. LEUCOVORIN CALCIUM [Suspect]
     Indication: COLON CANCER METASTATIC
     Dosage: 200MG/M2 IV
     Route: 042
     Dates: start: 20040127

REACTIONS (1)
  - PERIRECTAL ABSCESS [None]
